FAERS Safety Report 6220627-4 (Version None)
Quarter: 2009Q2

REPORT INFORMATION
  Report Type: 
  Country: None (occurrence: None)
  Receive Date: 20090610
  Receipt Date: 20090602
  Transmission Date: 20091009
  Serious: Yes (Hospitalization)
  Sender: FDA-Public Use
  Company Number: US-BIOGENIDEC-2009BI010894

PATIENT
  Age: 66 Year
  Sex: Female

DRUGS (1)
  1. TYSABRI [Suspect]
     Indication: MULTIPLE SCLEROSIS
     Route: 042
     Dates: start: 20081101

REACTIONS (5)
  - COGNITIVE DISORDER [None]
  - DIARRHOEA [None]
  - HERNIA [None]
  - MULTIPLE SCLEROSIS RELAPSE [None]
  - NEUROPATHY PERIPHERAL [None]
